FAERS Safety Report 9498313 (Version 1)
Quarter: 2013Q3

REPORT INFORMATION
  Report Type: Spontaneous
  Country: US (occurrence: None)
  Receive Date: 20130903
  Receipt Date: 20130903
  Transmission Date: 20140515
  Serious: Yes (Life-Threatening)
  Sender: FDA-Public Use
  Company Number: None

PATIENT
  Age: 69 Year
  Sex: Male
  Weight: 73.03 kg

DRUGS (1)
  1. UNASYN [Suspect]
     Dates: start: 20130823

REACTIONS (3)
  - Depressed level of consciousness [None]
  - Hypotension [None]
  - Hyposmia [None]
